FAERS Safety Report 19607376 (Version 3)
Quarter: 2021Q3

REPORT INFORMATION
  Report Type: Report from Study
  Country: US (occurrence: US)
  Receive Date: 20210726
  Receipt Date: 20210811
  Transmission Date: 20211014
  Serious: Yes (Other)
  Sender: FDA-Public Use
  Company Number: US-MTPC-MTDA2021-0017559

PATIENT
  Sex: Male

DRUGS (1)
  1. EDARAVONE INJ [Suspect]
     Active Substance: EDARAVONE
     Indication: AMYOTROPHIC LATERAL SCLEROSIS
     Dosage: UNK
     Route: 065

REACTIONS (5)
  - Dyspnoea [Unknown]
  - Muscular weakness [Unknown]
  - Confusional state [Unknown]
  - Asthenia [Unknown]
  - Condition aggravated [Unknown]
